FAERS Safety Report 7605602-7 (Version None)
Quarter: 2011Q3

REPORT INFORMATION
  Report Type: 
  Country: None (occurrence: None)
  Receive Date: 20110713
  Receipt Date: 20110707
  Transmission Date: 20111222
  Serious: Yes (Other)
  Sender: FDA-Public Use
  Company Number: PH-JNJFOC-20110610908

PATIENT
  Age: 62 Year
  Sex: Male

DRUGS (2)
  1. DORIBAX [Suspect]
     Indication: ABDOMINAL INFECTION
     Route: 041
  2. DORIBAX [Suspect]
     Indication: DIABETIC FOOT
     Route: 041

REACTIONS (2)
  - PSEUDOMONAS INFECTION [None]
  - ACINETOBACTER INFECTION [None]
